FAERS Safety Report 8457457 (Version 3)
Quarter: 2013Q1

REPORT INFORMATION
  Report Type: Spontaneous
  Country: US (occurrence: US)
  Receive Date: 20120314
  Receipt Date: 20130206
  Transmission Date: 20140127
  Serious: Yes (Hospitalization, Other)
  Sender: FDA-Public Use
  Company Number: US-BAYER-2012-022089

PATIENT
  Age: 36 Year
  Sex: Female
  Weight: 131.52 kg

DRUGS (14)
  1. OCELLA [Suspect]
     Indication: POLYCYSTIC OVARIES
     Dosage: UNK
     Dates: start: 20110217, end: 20110511
  2. OCELLA [Suspect]
     Indication: PREMENSTRUAL SYNDROME
  3. OCELLA [Suspect]
     Indication: MENSTRUAL DISORDER
  4. YASMIN [Suspect]
     Indication: POLYCYSTIC OVARIES
     Dosage: UNK
     Dates: start: 200312, end: 200401
  5. YASMIN [Suspect]
     Indication: PREMENSTRUAL SYNDROME
  6. YASMIN [Suspect]
     Indication: MENSTRUAL DISORDER
  7. DROSPIRENONE W/ETHINYLESTRADIOL [Suspect]
     Indication: POLYCYSTIC OVARIES
     Dosage: UNK
     Dates: start: 20110512, end: 20110526
  8. DROSPIRENONE W/ETHINYLESTRADIOL [Suspect]
     Indication: PREMENSTRUAL SYNDROME
  9. DROSPIRENONE W/ETHINYLESTRADIOL [Suspect]
     Indication: MENSTRUAL DISORDER
  10. METFORMIN [Concomitant]
     Dosage: 1000 MG, EVERY 12 HOURS
     Route: 048
  11. PRO-AIR [Concomitant]
     Dosage: 2 PUFF(S), Q4HR
     Route: 048
  12. IBUPROFEN [Concomitant]
     Dosage: 600-800 MG, Q6 HOURS
     Route: 048
  13. HYDROCODONE [Concomitant]
     Indication: PAIN
     Dosage: UNK
  14. MEDROXYPROGESTERONE [Concomitant]
     Dosage: 10 MG, UNK
     Route: 048
     Dates: start: 20110124, end: 20110216

REACTIONS (11)
  - Deep vein thrombosis [Recovering/Resolving]
  - Deep vein thrombosis [Recovering/Resolving]
  - Thrombophlebitis superficial [None]
  - Post thrombotic syndrome [None]
  - Pain [Recovering/Resolving]
  - Injury [Recovering/Resolving]
  - Fear [None]
  - Pain in extremity [Recovering/Resolving]
  - Anxiety [None]
  - Oedema peripheral [Recovering/Resolving]
  - Off label use [None]
